FAERS Safety Report 4913564-6 (Version None)
Quarter: 2006Q1

REPORT INFORMATION
  Report Type: 
  Country: None (occurrence: None)
  Receive Date: 20060216
  Receipt Date: 20060206
  Transmission Date: 20060701
  Serious: Yes (Other)
  Sender: FDA-Public Use
  Company Number: 2006AC00255

PATIENT
  Age: 73 Year
  Sex: Male

DRUGS (2)
  1. ATENOLOL [Suspect]
     Indication: ATRIAL FIBRILLATION
  2. WARFARIN SODIUM [Suspect]
     Indication: ATRIAL FIBRILLATION

REACTIONS (3)
  - BRADYARRHYTHMIA [None]
  - FAT EMBOLISM [None]
  - RENAL IMPAIRMENT [None]
